FAERS Safety Report 11079210 (Version 4)
Quarter: 2015Q3

REPORT INFORMATION
  Report Type: Report from Study
  Country: BR (occurrence: BR)
  Receive Date: 20150430
  Receipt Date: 20150710
  Transmission Date: 20151125
  Serious: Yes (Other)
  Sender: FDA-Public Use
  Company Number: BR-SA-2015SA053990

PATIENT
  Age: 63 Year
  Sex: Female
  Weight: 71 kg

DRUGS (10)
  1. SIMVASTATIN. [Concomitant]
     Active Substance: SIMVASTATIN
     Dosage: STRENGTH: 20MG
  2. PURAN [Concomitant]
     Active Substance: LEVOTHYROXINE SODIUM
  3. DEPURA [Concomitant]
     Active Substance: CHOLECALCIFEROL
  4. DIAMICRON [Concomitant]
     Active Substance: GLICLAZIDE
     Dosage: STRENGTH: 60MG
  5. GALVUS [Concomitant]
     Active Substance: VILDAGLIPTIN
     Indication: TYPE 2 DIABETES MELLITUS
     Dosage: STRENGTH: 50MG
  6. LANTUS [Suspect]
     Active Substance: INSULIN GLARGINE
     Indication: TYPE 2 DIABETES MELLITUS
     Route: 058
     Dates: start: 2011
  7. CLIKSTAR [Concomitant]
     Active Substance: CLIKSTAR
     Dosage: SILVER PEN
     Route: 058
     Dates: start: 2012
  8. OMEPRAZOLE. [Concomitant]
     Active Substance: OMEPRAZOLE
  9. OSCAL D [Concomitant]
     Active Substance: CALCIUM CARBONATE\CHOLECALCIFEROL
  10. ATACAND [Concomitant]
     Active Substance: CANDESARTAN CILEXETIL
     Dosage: STRENGTH: 16 MG

REACTIONS (26)
  - Alopecia [Recovering/Resolving]
  - Dry skin [Recovering/Resolving]
  - Injection site pain [Recovered/Resolved]
  - Urinary incontinence [Recovered/Resolved]
  - Dry eye [Recovering/Resolving]
  - Fatigue [Recovering/Resolving]
  - Injection site erythema [Recovered/Resolved]
  - General physical health deterioration [Recovering/Resolving]
  - Depression [Recovering/Resolving]
  - Nail disorder [Recovering/Resolving]
  - Depressed mood [Recovering/Resolving]
  - Device failure [Unknown]
  - Pain [Recovered/Resolved]
  - Eating disorder [Recovering/Resolving]
  - Abdominal pain [Recovered/Resolved]
  - Wrong technique in product usage process [Unknown]
  - Malaise [Recovered/Resolved]
  - Vision blurred [Recovered/Resolved]
  - Malaise [Unknown]
  - Blood glucose increased [Recovered/Resolved]
  - Diabetes mellitus [Unknown]
  - Diarrhoea [Recovered/Resolved]
  - Anxiety [Recovering/Resolving]
  - Protein deficiency [Recovering/Resolving]
  - Activities of daily living impaired [Recovering/Resolving]
  - Injection site swelling [Recovered/Resolved]

NARRATIVE: CASE EVENT DATE: 2013
